FAERS Safety Report 7110944-8 (Version None)
Quarter: 2010Q4

REPORT INFORMATION
  Report Type: 
  Country: None (occurrence: None)
  Receive Date: 20101118
  Receipt Date: 20101110
  Transmission Date: 20110411
  Serious: Yes (Hospitalization, Other)
  Sender: FDA-Public Use
  Company Number: FR-ABBOTT-10P-056-0684406-00

PATIENT
  Sex: Male

DRUGS (10)
  1. KALETRA [Suspect]
     Indication: HIV INFECTION
     Route: 048
     Dates: end: 20100212
  2. VIREAD [Suspect]
     Indication: HIV INFECTION
     Dates: end: 20100212
  3. VIDEX [Suspect]
     Indication: HIV INFECTION
     Route: 048
     Dates: end: 20100212
  4. PROGRAF [Concomitant]
     Indication: PRODUCT USED FOR UNKNOWN INDICATION
     Route: 048
     Dates: end: 20100212
  5. GLUCOR [Concomitant]
     Indication: PRODUCT USED FOR UNKNOWN INDICATION
     Route: 048
  6. IXPRIM [Concomitant]
     Indication: PRODUCT USED FOR UNKNOWN INDICATION
     Route: 048
  7. IKOREL [Concomitant]
     Indication: PRODUCT USED FOR UNKNOWN INDICATION
     Route: 048
     Dates: end: 20100212
  8. LEXOMIL [Concomitant]
     Indication: PRODUCT USED FOR UNKNOWN INDICATION
     Route: 048
     Dates: end: 20100212
  9. CETIRIZINE HCL [Concomitant]
     Indication: PRODUCT USED FOR UNKNOWN INDICATION
     Route: 048
     Dates: end: 20100212
  10. CIFLOX [Concomitant]
     Indication: PRODUCT USED FOR UNKNOWN INDICATION
     Dates: start: 20100201, end: 20100212

REACTIONS (17)
  - APRAXIA [None]
  - BRONCHOPULMONARY ASPERGILLOSIS [None]
  - CHOLESTASIS [None]
  - COMA [None]
  - DEHYDRATION [None]
  - DIABETES INSIPIDUS [None]
  - DIARRHOEA [None]
  - HYPOTENSION [None]
  - LIVER TRANSPLANT REJECTION [None]
  - METABOLIC ACIDOSIS [None]
  - MYOCARDIAL ISCHAEMIA [None]
  - OROPHARYNGITIS FUNGAL [None]
  - POLYURIA [None]
  - PYREXIA [None]
  - RENAL FAILURE ACUTE [None]
  - RENAL TUBULAR DISORDER [None]
  - TACHYPNOEA [None]
